FAERS Safety Report 8218438-3 (Version None)
Quarter: 2012Q1

REPORT INFORMATION
  Report Type: 
  Country: None (occurrence: None)
  Receive Date: 20120319
  Receipt Date: 20120315
  Transmission Date: 20120608
  Serious: No
  Sender: FDA-Public Use
  Company Number: US-PFIZER INC-2012030247

PATIENT
  Sex: Female
  Weight: 98 kg

DRUGS (4)
  1. CHANTIX [Suspect]
     Dosage: UNK
     Dates: start: 20111001
  2. CHANTIX [Suspect]
     Dosage: 1 MG, 2X/DAY
  3. RISPERDAL [Concomitant]
     Indication: THINKING ABNORMAL
     Dosage: 4 MG, DAILY
  4. CHANTIX [Suspect]
     Indication: SMOKING CESSATION THERAPY
     Dosage: 0.5 MG, DAILY
     Dates: start: 20110701, end: 20110101

REACTIONS (1)
  - STRESS [None]
